FAERS Safety Report 4774790-2 (Version None)
Quarter: 2005Q3

REPORT INFORMATION
  Report Type: 
  Country: None (occurrence: None)
  Receive Date: 20050921
  Receipt Date: 20050909
  Transmission Date: 20060218
  Serious: Yes (Hospitalization)
  Sender: FDA-Public Use
  Company Number: 2005UW13390

PATIENT
  Age: 73 Year
  Sex: Male
  Weight: 46.4 kg

DRUGS (16)
  1. IRESSA [Suspect]
     Indication: ADENOCARCINOMA PANCREAS
     Route: 048
     Dates: start: 20050801, end: 20050822
  2. DOCETAXEL [Suspect]
     Indication: ADENOCARCINOMA PANCREAS
     Dosage: 40 MG/M2 IV DAYS 1,8
     Route: 042
     Dates: start: 20050801, end: 20050817
  3. ARANESP [Concomitant]
     Dates: start: 20050601
  4. BENADRYL [Concomitant]
     Dates: start: 20041124
  5. COLACE [Concomitant]
     Dates: start: 20041124
  6. COMPAZINE [Concomitant]
     Dates: start: 20041201
  7. DECADRON [Concomitant]
     Dates: start: 20050718
  8. HYDROCHLOROTHIAZIDE [Concomitant]
     Dates: start: 20050810
  9. MIRALAX [Concomitant]
     Dates: start: 20041124
  10. MUCOMYST [Concomitant]
     Dates: start: 20050518
  11. MULTI-VITAMIN [Concomitant]
     Dates: start: 20041124
  12. OXANDRIN [Concomitant]
     Dates: start: 20050509
  13. OXYCODONE HCL [Concomitant]
     Dates: start: 20050810
  14. PREDNISONE [Concomitant]
     Dates: start: 20050518
  15. SENOKOT [Concomitant]
     Dates: start: 20041124
  16. ZOFRAN [Concomitant]
     Dates: start: 20041201

REACTIONS (6)
  - DISEASE PROGRESSION [None]
  - LIVER ABSCESS [None]
  - METASTASES TO LIVER [None]
  - PLEURAL EFFUSION [None]
  - PNEUMONIA KLEBSIELLA [None]
  - STREPTOCOCCAL BACTERAEMIA [None]
